FAERS Safety Report 4622310-5 (Version None)
Quarter: 2005Q1

REPORT INFORMATION
  Report Type: 
  Country: None (occurrence: None)
  Receive Date: 20050328
  Receipt Date: 20050315
  Transmission Date: 20050727
  Serious: Yes (Hospitalization, Other)
  Sender: FDA-Public Use
  Company Number: 2005044854

PATIENT
  Sex: Female

DRUGS (1)
  1. CELEBREX [Suspect]
     Indication: ILL-DEFINED DISORDER
     Dosage: ORAL
     Route: 048

REACTIONS (5)
  - ANGINA PECTORIS [None]
  - CARDIAC ARREST [None]
  - CARDIAC DISORDER [None]
  - HYPERTENSION [None]
  - MALAISE [None]
